FAERS Safety Report 5155726-1 (Version None)
Quarter: 2006Q4

REPORT INFORMATION
  Report Type: 
  Country: None (occurrence: None)
  Receive Date: 20061114
  Receipt Date: 20061103
  Transmission Date: 20070319
  Serious: Yes (Hospitalization)
  Sender: FDA-Public Use
  Company Number: 012627

PATIENT
  Age: 66 Year
  Sex: Female

DRUGS (1)
  1. PRIALT [Suspect]
     Indication: BACK PAIN
     Dosage: ONCE/HOUR, INTRATHECAL
     Route: 037

REACTIONS (2)
  - CATHETER RELATED INFECTION [None]
  - MENINGITIS [None]
